FAERS Safety Report 6921466-9 (Version None)
Quarter: 2010Q3

REPORT INFORMATION
  Report Type: 
  Country: None (occurrence: None)
  Receive Date: 20100812
  Receipt Date: 20090227
  Transmission Date: 20110219
  Serious: No
  Sender: FDA-Public Use
  Company Number: A0770859A

PATIENT
  Age: 65 Year
  Sex: Male

DRUGS (5)
  1. TAGAMET HB 200 [Suspect]
     Route: 048
  2. DARVOCET [Concomitant]
  3. LIPITOR [Concomitant]
  4. PLAVIX [Concomitant]
  5. UNKNOWN [Concomitant]

REACTIONS (2)
  - ABDOMINAL PAIN UPPER [None]
  - SOMNOLENCE [None]
